FAERS Safety Report 8080538-9 (Version None)
Quarter: 2012Q1

REPORT INFORMATION
  Report Type: 
  Country: None (occurrence: None)
  Receive Date: 20120130
  Receipt Date: 20120125
  Transmission Date: 20120608
  Serious: Yes (Hospitalization, Other)
  Sender: FDA-Public Use
  Company Number: US-GILEAD-2012-0048973

PATIENT
  Sex: Female

DRUGS (1)
  1. LETAIRIS [Suspect]
     Indication: PRODUCT USED FOR UNKNOWN INDICATION
     Dosage: 5 MG, UNK
     Route: 048
     Dates: start: 20110805, end: 20111208

REACTIONS (5)
  - DIARRHOEA [None]
  - ANAEMIA [None]
  - OEDEMA PERIPHERAL [None]
  - DEHYDRATION [None]
  - THERAPEUTIC RESPONSE DECREASED [None]
